FAERS Safety Report 5590861-5 (Version None)
Quarter: 2007Q4

REPORT INFORMATION
  Report Type: 
  Country: None (occurrence: None)
  Receive Date: 20071224
  Receipt Date: 20061018
  Transmission Date: 20080405
  Serious: Yes (Hospitalization)
  Sender: FDA-Public Use
  Company Number: S06-USA-04334-01

PATIENT
  Age: 84 Year
  Sex: Female

DRUGS (12)
  1. NAMENDA [Suspect]
     Indication: DEMENTIA ALZHEIMER'S TYPE
     Dosage: 10 MG BID PO
     Route: 048
     Dates: start: 20050101, end: 20061031
  2. ARICEPT [Concomitant]
  3. ACETAMINOPHEN [Concomitant]
  4. ZOLOFT [Concomitant]
  5. LOPRESSOR [Concomitant]
  6. LOMOTIL (DIPHENOXYLATE/ATROPINE) [Concomitant]
  7. NEXIUM [Concomitant]
  8. REGLAN [Concomitant]
  9. WELCHOL (METOCLOPRAMIDE) [Concomitant]
  10. PEPCID [Concomitant]
  11. IMODIUM [Concomitant]
  12. PERIACTIN [Concomitant]

REACTIONS (5)
  - EOSINOPHIL PERCENTAGE INCREASED [None]
  - ILEUS [None]
  - LYMPHOCYTE PERCENTAGE DECREASED [None]
  - RASH PRURITIC [None]
  - RED BLOOD CELL MORPHOLOGY ABNORMAL [None]
